FAERS Safety Report 14216384 (Version 2)
Quarter: 2017Q4

REPORT INFORMATION
  Report Type: Report from Study
  Country: US (occurrence: US)
  Receive Date: 20171122
  Receipt Date: 20171127
  Transmission Date: 20180321
  Serious: Yes (Other)
  Sender: FDA-Public Use
  Company Number: US-ASTRAZENECA-2017SF00889

PATIENT
  Sex: Female

DRUGS (13)
  1. COLACE [Concomitant]
     Active Substance: DOCUSATE SODIUM
  2. CHLORTHALIDONE. [Concomitant]
     Active Substance: CHLORTHALIDONE
  3. PLAVIX [Concomitant]
     Active Substance: CLOPIDOGREL BISULFATE
  4. ZOFRAN [Concomitant]
     Active Substance: ONDANSETRON HYDROCHLORIDE
  5. TRAMADOL HCL-ACETAMINOPHEN [Concomitant]
  6. POTASSIUM [Concomitant]
     Active Substance: POTASSIUM
  7. VITAMIN B12 [Concomitant]
     Active Substance: CYANOCOBALAMIN
  8. CRESTOR [Suspect]
     Active Substance: ROSUVASTATIN CALCIUM
     Dosage: UNKNOWN DOSE AND FREQUENCY
     Route: 048
  9. SPIRONOLACTONE. [Concomitant]
     Active Substance: SPIRONOLACTONE
  10. MAGNESIUM [Concomitant]
     Active Substance: MAGNESIUM
  11. ENABLEX [Concomitant]
     Active Substance: DARIFENACIN HYDROBROMIDE
  12. LYNPARZA [Suspect]
     Active Substance: OLAPARIB
     Indication: OVARIAN CANCER
     Route: 048
     Dates: start: 20170927
  13. PANTOPRAZOLE SODIUM. [Concomitant]
     Active Substance: PANTOPRAZOLE SODIUM

REACTIONS (11)
  - Feeling hot [Unknown]
  - Erythema [Unknown]
  - Nausea [Unknown]
  - Somnolence [Unknown]
  - Fatigue [Unknown]
  - Ovarian cancer [Unknown]
  - Neuropathy peripheral [Unknown]
  - Rash [Unknown]
  - Pain [Unknown]
  - Peripheral swelling [Unknown]
  - Insomnia [Unknown]
